FAERS Safety Report 11851944 (Version 2)
Quarter: 2016Q1

REPORT INFORMATION
  Report Type: Report from Study
  Country: US (occurrence: US)
  Receive Date: 20151218
  Receipt Date: 20160322
  Transmission Date: 20160526
  Serious: Yes (Life-Threatening, Hospitalization, Other)
  Sender: FDA-Public Use
  Company Number: US-EXELIXIS-CABO-15005503

PATIENT
  Age: 50 Year
  Sex: Female
  Weight: 67.6 kg

DRUGS (20)
  1. COMETRIQ [Suspect]
     Active Substance: CABOZANTINIB S-MALATE
     Indication: THYROID CANCER
     Dosage: 140 MG, QD
     Route: 048
     Dates: start: 20150612, end: 2015
  2. SYNTHROID [Concomitant]
     Active Substance: LEVOTHYROXINE SODIUM
  3. ASA [Concomitant]
     Active Substance: ASPIRIN
  4. ROCALTROL [Concomitant]
     Active Substance: CALCITRIOL
  5. ROXICODONE [Concomitant]
     Active Substance: OXYCODONE HYDROCHLORIDE
  6. HYDROCORTISONE SUPPOSITORY [Concomitant]
     Active Substance: HYDROCORTISONE
  7. LORATADINE. [Concomitant]
     Active Substance: LORATADINE
  8. VITAMIN D [Concomitant]
     Active Substance: CHOLECALCIFEROL
  9. ALLERGY MEDICATION [Concomitant]
     Active Substance: DIPHENHYDRAMINE HYDROCHLORIDE
  10. LOMOTIL [Concomitant]
     Active Substance: ATROPINE SULFATE\DIPHENOXYLATE HYDROCHLORIDE
  11. SANDOSTATIN LAR DEPOT [Concomitant]
     Active Substance: OCTREOTIDE ACETATE
  12. ASPIRIN. [Concomitant]
     Active Substance: ASPIRIN
  13. CALCIUM VIT D [Concomitant]
  14. ZOFRAN [Concomitant]
     Active Substance: ONDANSETRON HYDROCHLORIDE
  15. PROTONIX [Concomitant]
     Active Substance: PANTOPRAZOLE SODIUM
  16. COMETRIQ [Suspect]
     Active Substance: CABOZANTINIB S-MALATE
     Dosage: 80 MG. QD
     Route: 048
     Dates: start: 20150817, end: 20151103
  17. NIZORAL [Concomitant]
     Active Substance: KETOCONAZOLE
  18. CALCIUM [Concomitant]
     Active Substance: CALCIUM
  19. IRON [Concomitant]
     Active Substance: IRON
  20. LOPRESSOR [Concomitant]
     Active Substance: METOPROLOL TARTRATE

REACTIONS (22)
  - Malignant neoplasm progression [Not Recovered/Not Resolved]
  - Dry throat [Unknown]
  - Memory impairment [Unknown]
  - Stridor [Recovered/Resolved]
  - Burning sensation [Unknown]
  - Alopecia [Unknown]
  - Small intestinal obstruction [Recovered/Resolved]
  - Haemorrhoids [Not Recovered/Not Resolved]
  - Intestinal perforation [Not Recovered/Not Resolved]
  - Cholelithiasis [Not Recovered/Not Resolved]
  - Diarrhoea [Not Recovered/Not Resolved]
  - Incarcerated hernia [Unknown]
  - Endotracheal intubation complication [Recovered/Resolved]
  - Colitis [Recovered/Resolved]
  - Enteritis [Recovered/Resolved]
  - Urinary tract infection [Recovered/Resolved]
  - Abdominal abscess [Recovered/Resolved]
  - Diverticulitis [Recovered/Resolved]
  - Oral discomfort [Unknown]
  - Skin ulcer [Recovering/Resolving]
  - Skin exfoliation [Not Recovered/Not Resolved]
  - Uterine leiomyoma [Not Recovered/Not Resolved]

NARRATIVE: CASE EVENT DATE: 201511
